FAERS Safety Report 15821314 (Version 1)
Quarter: 2019Q1

REPORT INFORMATION
  Report Type: Spontaneous
  Country: US (occurrence: US)
  Receive Date: 20190112
  Receipt Date: 20190112
  Transmission Date: 20190417
  Serious: Yes (Other)
  Sender: FDA-Public Use
  Company Number: None

PATIENT
  Age: 50 Year
  Sex: Female

DRUGS (1)
  1. FLUTICASONE 50 MICS SPR APO [Suspect]
     Active Substance: FLUTICASONE
     Indication: SINUS DISORDER
     Dosage: OTHER STRENGTH:METERED SPRAY;QUANTITY:16 SPRAY(S);OTHER ROUTE:SPRAY IN NOSTRIL?

REACTIONS (1)
  - Sinusitis [None]

NARRATIVE: CASE EVENT DATE: 20180807
